FAERS Safety Report 6945419 (Version 11)
Quarter: 2012Q4

REPORT INFORMATION
  Report Type: 
  Country: US (occurrence: US)
  Receive Date: 20090319
  Receipt Date: 20121010
  Transmission Date: 20130627
  Serious: Yes (Other)
  Sender: FDA-Public Use
  Company Number: PHEH2009US02428

PATIENT
  Sex: Female

DRUGS (49)
  1. AREDIA [Suspect]
     Indication: MULTIPLE MYELOMA
     Dates: end: 2007
  2. THALIDOMIDE [Concomitant]
     Dates: start: 200411, end: 2007
  3. PREDNISONE [Concomitant]
     Dates: end: 200505
  4. CLINDAMYCIN [Concomitant]
     Dosage: 300 mg, UNK
  5. DEXAMETHASONE [Concomitant]
  6. OMEPRAZOLE [Concomitant]
  7. FUROSEMIDE [Concomitant]
  8. SPIRONOLACTONE [Concomitant]
  9. PROMETHAZINE [Concomitant]
  10. PERIDEX [Concomitant]
  11. DECADRON                                /CAN/ [Concomitant]
  12. CIPRO [Concomitant]
     Dosage: 500 mg, BID
  13. HYDROCODONE [Concomitant]
  14. PRILOSEC [Concomitant]
  15. AZITHROMYCIN [Concomitant]
  16. ZITHROMAX ^HEINRICH MACK^ [Concomitant]
  17. OXYCODONE [Concomitant]
  18. ERYTHROMYCIN [Concomitant]
  19. HYDROMORPHONE [Concomitant]
  20. ONDANSETRON [Concomitant]
  21. METHADONE [Concomitant]
  22. TORADOL [Concomitant]
  23. VICODIN [Concomitant]
  24. MORPHINE [Concomitant]
  25. ASPIRIN ^BAYER^ [Concomitant]
  26. AMITRIPTYLINE [Concomitant]
  27. PERCOCET [Concomitant]
  28. FERROUS GLUCONATE [Concomitant]
  29. LOVENOX [Concomitant]
  30. MS CONTIN [Concomitant]
  31. METRONIDAZOLE [Concomitant]
  32. VISTARIL [Concomitant]
  33. PROPANOLOL [Concomitant]
  34. RANITIDINE [Concomitant]
  35. ELAVIL [Concomitant]
  36. MAXALT                                  /NET/ [Concomitant]
  37. RABEPRAZOLE [Concomitant]
  38. KENALOG [Concomitant]
  39. HYDROXYCHLOROQUINE [Concomitant]
  40. CELECOXIB [Concomitant]
  41. ALDACTONE [Concomitant]
  42. QUININE [Concomitant]
  43. MOBIC [Concomitant]
  44. DICLOFENAC [Concomitant]
     Dosage: 75 mg, PRN
  45. METHOTREXATE [Concomitant]
     Dosage: 2.5 mg, UNK
  46. FOLATE SODIUM [Concomitant]
     Dosage: 2 mg, UNK
  47. DOXEPIN [Concomitant]
     Dosage: 25 mg, UNK
  48. ZOLOFT [Concomitant]
  49. LORATADINE [Concomitant]

REACTIONS (58)
  - Pneumonia [Unknown]
  - Osteonecrosis of jaw [Unknown]
  - Osteomyelitis [Unknown]
  - Tooth loss [Unknown]
  - Pain [Unknown]
  - Discomfort [Unknown]
  - Deformity [Unknown]
  - Eating disorder [Unknown]
  - Emotional distress [Unknown]
  - Anxiety [Unknown]
  - Life expectancy shortened [Unknown]
  - Anhedonia [Unknown]
  - Injury [Unknown]
  - Physical disability [Unknown]
  - Pain in jaw [Unknown]
  - Tooth abscess [Unknown]
  - Swelling face [Unknown]
  - Periodontal disease [Unknown]
  - Gingivitis [Unknown]
  - Trismus [Unknown]
  - Dental caries [Unknown]
  - Sinusitis [Unknown]
  - Arnold-Chiari malformation [Unknown]
  - Fracture [Unknown]
  - Cervical dysplasia [Unknown]
  - Iron deficiency anaemia [Unknown]
  - Phlebitis [Unknown]
  - Duodenal ulcer [Unknown]
  - Bronchitis [Unknown]
  - Hyperglobulinaemia [Unknown]
  - Diverticulitis [Unknown]
  - Cellulitis [Unknown]
  - Thrombophlebitis [Unknown]
  - Anaemia [Unknown]
  - Osteoarthritis [Unknown]
  - Spinal osteoarthritis [Unknown]
  - Diabetes mellitus [Unknown]
  - Neuropathy peripheral [Unknown]
  - Upper respiratory tract infection [Unknown]
  - Sleep apnoea syndrome [Unknown]
  - Constipation [Unknown]
  - Parotitis [Unknown]
  - Musculoskeletal pain [Unknown]
  - Urinary tract infection [Unknown]
  - Pyuria [Unknown]
  - Gastrooesophageal reflux disease [Unknown]
  - Dyspepsia [Unknown]
  - Pain in extremity [Unknown]
  - Muscle spasms [Unknown]
  - Rotator cuff syndrome [Unknown]
  - Oedema peripheral [Unknown]
  - Peroneal nerve palsy [Unknown]
  - Asthenia [Unknown]
  - Fibromyalgia [Unknown]
  - Fatigue [Unknown]
  - Headache [Unknown]
  - Depression [Unknown]
  - Humerus fracture [Recovered/Resolved]
